FAERS Safety Report 4396662-8 (Version None)
Quarter: 2004Q3

REPORT INFORMATION
  Report Type: 
  Country: None (occurrence: None)
  Receive Date: 20040708
  Receipt Date: 20040625
  Transmission Date: 20050211
  Serious: Yes (Hospitalization)
  Sender: FDA-Public Use
  Company Number: STA-AE-04-MTX-264

PATIENT
  Age: 70 Year
  Sex: Female

DRUGS (4)
  1. METHOTREXATE [Suspect]
     Indication: RHEUMATOID ARTHRITIS
     Dosage: 7.5 MG 1X PER 1 WK, ORAL
     Route: 048
     Dates: end: 20040516
  2. METHOTREXATE [Suspect]
     Indication: RHEUMATOID ARTHRITIS
     Dosage: 7.5 MG 1X PER 1 WK, ORAL
     Route: 048
     Dates: start: 20040601, end: 20040601
  3. TRAMADOL HCL [Concomitant]
  4. DICLOFENAC [Concomitant]

REACTIONS (7)
  - ADENOCARCINOMA [None]
  - ARTHRITIS [None]
  - CONDITION AGGRAVATED [None]
  - LYMPHADENOPATHY MEDIASTINAL [None]
  - METASTASES TO LYMPH NODES [None]
  - PARANEOPLASTIC SYNDROME [None]
  - PLEURAL EFFUSION [None]
